FAERS Safety Report 10611452 (Version 1)
Quarter: 2014Q4

REPORT INFORMATION
  Report Type: Report from Study
  Country: FR (occurrence: FR)
  Receive Date: 20141126
  Receipt Date: 20141126
  Transmission Date: 20150529
  Serious: Yes (Other)
  Sender: FDA-Public Use
  Company Number: FR-BAXTER-2014BAX070698

PATIENT

DRUGS (3)
  1. RITUXIMAB [Suspect]
     Active Substance: RITUXIMAB
     Indication: GLOMERULONEPHRITIS MEMBRANOUS
     Dosage: ON DAY 1
     Route: 042
  2. ENDOXAN 1000 MG, POUDRE POUR SOLUTION INJECTABLE [Suspect]
     Active Substance: CYCLOPHOSPHAMIDE
     Indication: GLOMERULONEPHRITIS MEMBRANOUS
     Dosage: ON DAY 1
     Route: 042
  3. DEXAMETHASONE. [Suspect]
     Active Substance: DEXAMETHASONE
     Indication: GLOMERULONEPHRITIS MEMBRANOUS
     Dosage: EVERY DAY FROM DAYS 1 TO DAY 7
     Route: 048

REACTIONS (1)
  - Disease recurrence [Unknown]
